FAERS Safety Report 21183410 (Version 1)
Quarter: 2022Q3

REPORT INFORMATION
  Report Type: Spontaneous
  Country: US (occurrence: US)
  Receive Date: 20220808
  Receipt Date: 20220808
  Transmission Date: 20221027
  Serious: No
  Sender: FDA-Public Use
  Company Number: US-SA-SAC20220803000245

PATIENT
  Age: 52 Year
  Sex: Female
  Weight: 44 kg

DRUGS (20)
  1. ALDURAZYME [Suspect]
     Active Substance: LARONIDASE
     Indication: Mucopolysaccharidosis
     Dosage: 26.1 MG, QW
     Route: 041
     Dates: start: 20210128
  2. DIPHENHYDRAMINE [Concomitant]
     Active Substance: DIPHENHYDRAMINE
  3. METHADONE HYDROCHLORIDE [Concomitant]
     Active Substance: METHADONE HYDROCHLORIDE
     Dosage: SOLUTION
  4. TOPROL XL [Concomitant]
     Active Substance: METOPROLOL SUCCINATE
  5. EPINEPHRINE [Concomitant]
     Active Substance: EPINEPHRINE
     Dosage: AUTO-INJECTOR
  6. TIMOLOL MALEATE [Concomitant]
     Active Substance: TIMOLOL MALEATE
  7. WARFARIN SODIUM [Concomitant]
     Active Substance: WARFARIN SODIUM
  8. IRON [Concomitant]
     Active Substance: IRON
  9. LASIX [Concomitant]
     Active Substance: FUROSEMIDE
  10. OMEPRAZOLE [Concomitant]
     Active Substance: OMEPRAZOLE
  11. IOPIDINE [Concomitant]
     Active Substance: APRACLONIDINE HYDROCHLORIDE
  12. ISTALOL [Concomitant]
     Active Substance: TIMOLOL MALEATE
     Dosage: UNK, QD
  13. SODIUM CHLORIDE [Concomitant]
     Active Substance: SODIUM CHLORIDE
  14. COLACE [Concomitant]
     Active Substance: DOCUSATE SODIUM
     Dosage: DROP
  15. LYRICA [Concomitant]
     Active Substance: PREGABALIN
  16. VALIUM [Concomitant]
     Active Substance: DIAZEPAM
  17. MIRALAX [Concomitant]
     Active Substance: POLYETHYLENE GLYCOL 3350
  18. SODIUM CHLORIDE [Concomitant]
     Active Substance: SODIUM CHLORIDE
  19. KLOR CON M [Concomitant]
     Active Substance: POTASSIUM CHLORIDE
     Dosage: MEQ PRT SR
  20. OXYGEN [Concomitant]
     Active Substance: OXYGEN

REACTIONS (2)
  - Poor quality sleep [Unknown]
  - Fatigue [Unknown]

NARRATIVE: CASE EVENT DATE: 20220728
